FAERS Safety Report 25824736 (Version 1)
Quarter: 2025Q3

REPORT INFORMATION
  Report Type: Spontaneous
  Country: US (occurrence: None)
  Receive Date: 20250919
  Receipt Date: 20250919
  Transmission Date: 20251020
  Serious: Yes (Life-Threatening, Hospitalization, Disabling, Other)
  Sender: FDA-CTU
  Company Number: None

PATIENT
  Age: 54 Year
  Sex: Male
  Weight: 90 kg

DRUGS (2)
  1. CABENUVA [Suspect]
     Active Substance: CABOTEGRAVIR\RILPIVIRINE
     Indication: HIV infection
     Route: 030
     Dates: start: 20241008, end: 20250113
  2. magnisium [Concomitant]

REACTIONS (16)
  - Inappropriate schedule of product administration [None]
  - Polymyositis [None]
  - Toxicity to various agents [None]
  - Product administration error [None]
  - Blood creatine phosphokinase increased [None]
  - Blood creatine phosphokinase increased [None]
  - Hepatitis [None]
  - Pneumonitis [None]
  - Troponin increased [None]
  - Dyspnoea [None]
  - Fatigue [None]
  - Urinary incontinence [None]
  - Anal incontinence [None]
  - Blood cholesterol increased [None]
  - White blood cell count increased [None]
  - Gait inability [None]

NARRATIVE: CASE EVENT DATE: 20250113
